FAERS Safety Report 4319107-2 (Version None)
Quarter: 2004Q1

REPORT INFORMATION
  Report Type: 
  Country: None (occurrence: None)
  Receive Date: 20040318
  Receipt Date: 20040318
  Transmission Date: 20041129
  Serious: No
  Sender: FDA-Public Use
  Company Number: None

PATIENT
  Sex: Male
  Weight: 104.3273 kg

DRUGS (1)
  1. ZOLOFT [Suspect]
     Indication: DEPRESSION
     Dosage: 1 DAILY ORAL
     Route: 048
     Dates: start: 20000107, end: 20020315

REACTIONS (3)
  - COORDINATION ABNORMAL [None]
  - FEELING ABNORMAL [None]
  - SUICIDAL IDEATION [None]
